FAERS Safety Report 7081572-8 (Version None)
Quarter: 2010Q4

REPORT INFORMATION
  Report Type: 
  Country: None (occurrence: None)
  Receive Date: 20101025
  Receipt Date: 20101014
  Transmission Date: 20110411
  Serious: Yes (Other)
  Sender: FDA-Public Use
  Company Number: CAP10000407

PATIENT
  Age: 71 Year
  Sex: Female
  Weight: 70.3 kg

DRUGS (7)
  1. ACTONEL [Suspect]
     Indication: OSTEOPOROSIS
     Dosage: 35MG ONCE WEEKLY, ORAL
     Route: 048
  2. HORMONES AND RELATED AGENTS [Suspect]
     Dates: end: 20100512
  3. CRESTOR [Concomitant]
  4. AVALIDE [Concomitant]
  5. AVAPRO [Concomitant]
  6. ASPIRIN [Concomitant]
  7. PREVACID [Concomitant]

REACTIONS (6)
  - BLOOD GLUCOSE ABNORMAL [None]
  - BREAST CANCER [None]
  - FATIGUE [None]
  - FEELING ABNORMAL [None]
  - OESOPHAGEAL PAIN [None]
  - VOMITING [None]
